FAERS Safety Report 21248160 (Version 1)
Quarter: 2022Q3

REPORT INFORMATION
  Report Type: Spontaneous
  Country: US (occurrence: None)
  Receive Date: 20220823
  Receipt Date: 20220823
  Transmission Date: 20221027
  Serious: No
  Sender: FDA-Public Use
  Company Number: None

PATIENT
  Age: 71 Year
  Sex: Female
  Weight: 146.25 kg

DRUGS (1)
  1. PRALUENT [Suspect]
     Active Substance: ALIROCUMAB
     Indication: Blood cholesterol increased
     Dosage: OTHER QUANTITY : 1 INJECTION(S);?OTHER FREQUENCY : EVERY 2 WEEKS;?
     Route: 058
     Dates: start: 20220817, end: 20220817

REACTIONS (3)
  - Dyspnoea [None]
  - Hypokinesia [None]
  - Loss of personal independence in daily activities [None]

NARRATIVE: CASE EVENT DATE: 20220822
